FAERS Safety Report 5171399-6 (Version None)
Quarter: 2006Q4

REPORT INFORMATION
  Report Type: 
  Country: None (occurrence: None)
  Receive Date: 20061213
  Receipt Date: 20060215
  Transmission Date: 20070319
  Serious: Yes (Life-Threatening, Other)
  Sender: FDA-Public Use
  Company Number: US-AMGEN-US169107

PATIENT
  Sex: Female
  Weight: 65.4 kg

DRUGS (4)
  1. ENBREL [Suspect]
     Indication: RHEUMATOID ARTHRITIS
     Dates: start: 20031222, end: 20060207
  2. METHOTREXATE [Concomitant]
     Dates: start: 20030405, end: 20060209
  3. EFFEXOR [Concomitant]
  4. TRAZODONE HCL [Concomitant]

REACTIONS (1)
  - BREAST CANCER IN SITU [None]
